FAERS Safety Report 6626128-3 (Version None)
Quarter: 2010Q1

REPORT INFORMATION
  Report Type: 
  Country: None (occurrence: None)
  Receive Date: 20100310
  Receipt Date: 20100303
  Transmission Date: 20100710
  Serious: Yes (Hospitalization)
  Sender: FDA-Public Use
  Company Number: B0638749A

PATIENT
  Sex: Female

DRUGS (4)
  1. CLAVULIN [Suspect]
     Indication: DRUG USE FOR UNKNOWN INDICATION
  2. NEXIUM [Concomitant]
  3. IBRUPROFEN [Concomitant]
  4. EFFERALGAN [Concomitant]

REACTIONS (3)
  - ABDOMINAL PAIN UPPER [None]
  - PRESYNCOPE [None]
  - RESPIRATORY DISTRESS [None]
